FAERS Safety Report 5405291-6 (Version None)
Quarter: 2007Q3

REPORT INFORMATION
  Report Type: 
  Country: None (occurrence: None)
  Receive Date: 20070803
  Receipt Date: 20070731
  Transmission Date: 20080115
  Serious: Yes (Hospitalization, Other)
  Sender: FDA-Public Use
  Company Number: B0475115A

PATIENT
  Age: 92 Year
  Sex: Female
  Weight: 40 kg

DRUGS (6)
  1. ARIXTRA [Suspect]
     Dosage: 2.5MG PER DAY
     Route: 058
     Dates: start: 20070501, end: 20070501
  2. KARDEGIC [Concomitant]
  3. CARDENSIEL [Concomitant]
     Route: 048
  4. LASIX [Concomitant]
     Dosage: 40MG PER DAY
     Route: 048
  5. POTASSIUM CHLORIDE [Concomitant]
     Route: 048
  6. NITROGLYCERIN [Concomitant]

REACTIONS (1)
  - HAEMATOMA [None]
